FAERS Safety Report 24394584 (Version 1)
Quarter: 2024Q4

REPORT INFORMATION
  Report Type: Spontaneous
  Country: CA (occurrence: CA)
  Receive Date: 20241004
  Receipt Date: 20241004
  Transmission Date: 20250114
  Serious: Yes (Death, Other)
  Sender: ALEXION PHARMACEUTICALS
  Company Number: CA-AstraZeneca-CH-00710740A

PATIENT
  Age: 36 Year

DRUGS (112)
  1. QUETIAPINE FUMARATE [Suspect]
     Active Substance: QUETIAPINE FUMARATE
     Indication: Product used for unknown indication
     Dosage: UNK
  2. QUETIAPINE FUMARATE [Suspect]
     Active Substance: QUETIAPINE FUMARATE
     Dosage: UNK
  3. QUETIAPINE FUMARATE [Suspect]
     Active Substance: QUETIAPINE FUMARATE
     Dosage: UNK
  4. QUETIAPINE FUMARATE [Suspect]
     Active Substance: QUETIAPINE FUMARATE
     Dosage: UNK
  5. ABACAVIR SULFATE [Suspect]
     Active Substance: ABACAVIR SULFATE
     Route: 050
  6. ABACAVIR SULFATE [Suspect]
     Active Substance: ABACAVIR SULFATE
  7. ABACAVIR SULFATE [Suspect]
     Active Substance: ABACAVIR SULFATE
     Route: 050
  8. ABACAVIR SULFATE [Suspect]
     Active Substance: ABACAVIR SULFATE
  9. ABACAVIR\LAMIVUDINE [Suspect]
     Active Substance: ABACAVIR\LAMIVUDINE
  10. ACTEMRA [Suspect]
     Active Substance: TOCILIZUMAB
     Route: 065
  11. ACTEMRA [Suspect]
     Active Substance: TOCILIZUMAB
  12. ACTEMRA [Suspect]
     Active Substance: TOCILIZUMAB
     Route: 065
  13. ACTEMRA [Suspect]
     Active Substance: TOCILIZUMAB
  14. ADVAIR HFA [Suspect]
     Active Substance: FLUTICASONE PROPIONATE\SALMETEROL XINAFOATE
     Route: 065
  15. ADVAIR HFA [Suspect]
     Active Substance: FLUTICASONE PROPIONATE\SALMETEROL XINAFOATE
  16. ADVAIR HFA [Suspect]
     Active Substance: FLUTICASONE PROPIONATE\SALMETEROL XINAFOATE
     Route: 065
  17. ADVAIR HFA [Suspect]
     Active Substance: FLUTICASONE PROPIONATE\SALMETEROL XINAFOATE
  18. ALPRAZOLAM [Suspect]
     Active Substance: ALPRAZOLAM
     Route: 065
  19. ALPRAZOLAM [Suspect]
     Active Substance: ALPRAZOLAM
  20. ALPRAZOLAM [Suspect]
     Active Substance: ALPRAZOLAM
     Route: 065
  21. ALPRAZOLAM [Suspect]
     Active Substance: ALPRAZOLAM
  22. CLONIDINE [Suspect]
     Active Substance: CLONIDINE
     Route: 065
  23. CLONIDINE [Suspect]
     Active Substance: CLONIDINE
  24. CLONIDINE [Suspect]
     Active Substance: CLONIDINE
     Route: 065
  25. CLONIDINE [Suspect]
     Active Substance: CLONIDINE
  26. CODEINE [Suspect]
     Active Substance: CODEINE
     Route: 065
  27. CODEINE [Suspect]
     Active Substance: CODEINE
  28. CODEINE [Suspect]
     Active Substance: CODEINE
     Route: 065
  29. CODEINE [Suspect]
     Active Substance: CODEINE
  30. CRINONE [Suspect]
     Active Substance: PROGESTERONE
     Route: 065
  31. CRINONE [Suspect]
     Active Substance: PROGESTERONE
  32. CRINONE [Suspect]
     Active Substance: PROGESTERONE
     Route: 065
  33. CRINONE [Suspect]
     Active Substance: PROGESTERONE
  34. DEMEROL [Suspect]
     Active Substance: MEPERIDINE HYDROCHLORIDE
     Route: 065
  35. DEMEROL [Suspect]
     Active Substance: MEPERIDINE HYDROCHLORIDE
  36. DEMEROL [Suspect]
     Active Substance: MEPERIDINE HYDROCHLORIDE
     Route: 065
  37. DEMEROL [Suspect]
     Active Substance: MEPERIDINE HYDROCHLORIDE
  38. DICLOFENAC POTASSIUM [Suspect]
     Active Substance: DICLOFENAC POTASSIUM
     Route: 065
  39. DICLOFENAC POTASSIUM [Suspect]
     Active Substance: DICLOFENAC POTASSIUM
  40. DICLOFENAC POTASSIUM [Suspect]
     Active Substance: DICLOFENAC POTASSIUM
     Route: 065
  41. DICLOFENAC POTASSIUM [Suspect]
     Active Substance: DICLOFENAC POTASSIUM
  42. DICLOFENAC SODIUM [Suspect]
     Active Substance: DICLOFENAC SODIUM
     Route: 065
  43. DICLOFENAC SODIUM [Suspect]
     Active Substance: DICLOFENAC SODIUM
  44. DICLOFENAC SODIUM [Suspect]
     Active Substance: DICLOFENAC SODIUM
     Route: 065
  45. DICLOFENAC SODIUM [Suspect]
     Active Substance: DICLOFENAC SODIUM
  46. DIPHENHYDRAMINE [Suspect]
     Active Substance: DIPHENHYDRAMINE
     Route: 065
  47. DIPHENHYDRAMINE [Suspect]
     Active Substance: DIPHENHYDRAMINE
  48. DIPHENHYDRAMINE [Suspect]
     Active Substance: DIPHENHYDRAMINE
     Route: 065
  49. DIPHENHYDRAMINE [Suspect]
     Active Substance: DIPHENHYDRAMINE
  50. DOLUTEGRAVIR SODIUM [Suspect]
     Active Substance: DOLUTEGRAVIR SODIUM
     Route: 065
  51. DOLUTEGRAVIR SODIUM [Suspect]
     Active Substance: DOLUTEGRAVIR SODIUM
  52. DOLUTEGRAVIR SODIUM [Suspect]
     Active Substance: DOLUTEGRAVIR SODIUM
     Route: 065
  53. DOLUTEGRAVIR SODIUM [Suspect]
     Active Substance: DOLUTEGRAVIR SODIUM
  54. ENBREL [Suspect]
     Active Substance: ETANERCEPT
     Route: 065
  55. ENBREL [Suspect]
     Active Substance: ETANERCEPT
  56. ENBREL [Suspect]
     Active Substance: ETANERCEPT
     Route: 065
  57. ENBREL [Suspect]
     Active Substance: ETANERCEPT
  58. ACETAMINOPHEN [Suspect]
     Active Substance: ACETAMINOPHEN
  59. ABACAVIR SULFATE\DOLUTEGRAVIR SODIUM\LAMIVUDINE [Suspect]
     Active Substance: ABACAVIR SULFATE\DOLUTEGRAVIR SODIUM\LAMIVUDINE
  60. ACETAMINOPHEN AND CODEINE [Suspect]
     Active Substance: ACETAMINOPHEN\CODEINE PHOSPHATE
  61. OXYCODONE AND ACETAMINOPHEN [Suspect]
     Active Substance: ACETAMINOPHEN\OXYCODONE HYDROCHLORIDE
  62. DICLOFENAC POTASSIUM [Suspect]
     Active Substance: DICLOFENAC POTASSIUM
  63. BUPROPION [Suspect]
     Active Substance: BUPROPION
  64. SENNOSIDES A AND B [Suspect]
     Active Substance: SENNOSIDES A AND B
  65. CETIRIZINE [Suspect]
     Active Substance: CETIRIZINE HYDROCHLORIDE
  66. CHLORMEZANONE [Suspect]
     Active Substance: CHLORMEZANONE
  67. CITALOPRAM HYDROBROMIDE [Suspect]
     Active Substance: CITALOPRAM HYDROBROMIDE
  68. CODEINE PHOSPHATE\GUAIFENESIN\PSEUDOEPHEDRINE HYDROCHLORIDE [Suspect]
     Active Substance: CODEINE PHOSPHATE\GUAIFENESIN\PSEUDOEPHEDRINE HYDROCHLORIDE
  69. CYCLOBENZAPRINE [Suspect]
     Active Substance: CYCLOBENZAPRINE
  70. DIPHENHYDRAMINE [Suspect]
     Active Substance: DIPHENHYDRAMINE
  71. FLOVENT [Suspect]
     Active Substance: FLUTICASONE PROPIONATE
  72. FLUCONAZOLE [Suspect]
     Active Substance: FLUCONAZOLE
  73. FLUTICASONE PROPIONATE [Suspect]
     Active Substance: FLUTICASONE PROPIONATE
  74. FLUTICASONE PROPIONATE\SALMETEROL XINAFOATE [Suspect]
     Active Substance: FLUTICASONE PROPIONATE\SALMETEROL XINAFOATE
  75. FUROSEMIDE [Suspect]
     Active Substance: FUROSEMIDE
  76. GABAPENTIN [Suspect]
     Active Substance: GABAPENTIN
  77. HUMIRA [Suspect]
     Active Substance: ADALIMUMAB
  78. HYDROMORPHONE [Suspect]
     Active Substance: HYDROMORPHONE
  79. KETOPROFEN [Suspect]
     Active Substance: KETOPROFEN
  80. LAMIVUDINE [Suspect]
     Active Substance: LAMIVUDINE
  81. HERBALS\SENNA LEAF\SENNOSIDES [Suspect]
     Active Substance: HERBALS\SENNA LEAF\SENNOSIDES
  82. LYRICA [Suspect]
     Active Substance: PREGABALIN
  83. METHYLPREDNISOLONE SODIUM SUCCINATE [Suspect]
     Active Substance: METHYLPREDNISOLONE SODIUM SUCCINATE
  84. METHYLPREDNISOLONE ACETATE [Suspect]
     Active Substance: METHYLPREDNISOLONE ACETATE
  85. PREDNISOLONE SODIUM PHOSPHATE [Suspect]
     Active Substance: PREDNISOLONE SODIUM PHOSPHATE
  86. MONTELUKAST SODIUM [Suspect]
     Active Substance: MONTELUKAST SODIUM
  87. MORPHINE SULFATE [Suspect]
     Active Substance: MORPHINE SULFATE
  88. MOXIFLOXACIN HYDROCHLORIDE [Suspect]
     Active Substance: MOXIFLOXACIN HYDROCHLORIDE
  89. NORTRIPTYLINE [Suspect]
     Active Substance: NORTRIPTYLINE
  90. ONDANSETRON HYDROCHLORIDE [Suspect]
     Active Substance: ONDANSETRON HYDROCHLORIDE
  91. ORENCIA [Suspect]
     Active Substance: ABATACEPT
  92. PANTOPRAZOLE MAGNESIUM [Suspect]
     Active Substance: PANTOPRAZOLE MAGNESIUM
  93. PANTOPRAZOLE SODIUM [Suspect]
     Active Substance: PANTOPRAZOLE SODIUM
  94. HERBALS\PLANTAGO OVATA LEAF [Suspect]
     Active Substance: HERBALS\PLANTAGO OVATA LEAF
  95. PROGESTERONE [Suspect]
     Active Substance: PROGESTERONE
  96. RANITIDINE HYDROCHLORIDE [Suspect]
     Active Substance: RANITIDINE HYDROCHLORIDE
  97. REMICADE [Suspect]
     Active Substance: INFLIXIMAB
  98. RESTORIL [Suspect]
     Active Substance: TEMAZEPAM
  99. RITUXIMAB [Suspect]
     Active Substance: RITUXIMAB
  100. RITUXIMAB [Suspect]
     Active Substance: RITUXIMAB
  101. ALBUTEROL [Suspect]
     Active Substance: ALBUTEROL
  102. DICLOFENAC SODIUM [Suspect]
     Active Substance: DICLOFENAC SODIUM
  103. SENNA LEAF [Suspect]
     Active Substance: SENNA LEAF
  104. SENOKOT [Suspect]
     Active Substance: SENNOSIDES
  105. PANTOPRAZOLE MAGNESIUM [Suspect]
     Active Substance: PANTOPRAZOLE MAGNESIUM
  106. TEMAZEPAM [Suspect]
     Active Substance: TEMAZEPAM
  107. TYLENOL [Suspect]
     Active Substance: ACETAMINOPHEN
  108. VENLAFAXINE HYDROCHLORIDE [Suspect]
     Active Substance: VENLAFAXINE HYDROCHLORIDE
  109. DIETARY SUPPLEMENT [Suspect]
     Active Substance: DIETARY SUPPLEMENT
  110. WELLBUTRIN [Suspect]
     Active Substance: BUPROPION HYDROCHLORIDE
  111. XELJANZ [Suspect]
     Active Substance: TOFACITINIB CITRATE
  112. ZOPICLONE [Suspect]
     Active Substance: ZOPICLONE

REACTIONS (38)
  - Asthma [Fatal]
  - Back pain [Fatal]
  - Bursitis [Fatal]
  - Coeliac disease [Fatal]
  - Constipation [Fatal]
  - Erythema [Fatal]
  - Drug hypersensitivity [Fatal]
  - Drug ineffective [Fatal]
  - Drug intolerance [Fatal]
  - Contraindicated product administered [Fatal]
  - Exposure during pregnancy [Fatal]
  - Fatigue [Fatal]
  - Fluid retention [Fatal]
  - Foetal death [Fatal]
  - Food allergy [Fatal]
  - Headache [Fatal]
  - Hepatic enzyme increased [Fatal]
  - Hyperhidrosis [Fatal]
  - Hypersensitivity [Fatal]
  - Hypertension [Fatal]
  - Immunodeficiency [Fatal]
  - Infusion related reaction [Fatal]
  - Intentional product misuse [Fatal]
  - Joint swelling [Fatal]
  - Off label use [Fatal]
  - Overdose [Fatal]
  - Pain [Fatal]
  - Prescribed overdose [Fatal]
  - Product use issue [Fatal]
  - Psoriasis [Fatal]
  - Pyrexia [Fatal]
  - Rash [Fatal]
  - Rash erythematous [Fatal]
  - Rheumatoid arthritis [Fatal]
  - Temperature regulation disorder [Fatal]
  - Thrombocytopenia [Fatal]
  - Treatment failure [Fatal]
  - Upper respiratory tract infection [Fatal]
